FAERS Safety Report 6211302-0 (Version None)
Quarter: 2009Q2

REPORT INFORMATION
  Report Type: 
  Country: None (occurrence: None)
  Receive Date: 20090602
  Receipt Date: 20090525
  Transmission Date: 20091009
  Serious: Yes (Hospitalization, Other)
  Sender: FDA-Public Use
  Company Number: AU-TEVA-196331USA

PATIENT
  Sex: Male

DRUGS (2)
  1. NALTREXONE HYDROCHLORIDE [Suspect]
     Dates: start: 20071101, end: 20071107
  2. ESCITALOPRAM OXALATE [Suspect]
     Indication: DEPRESSION
     Route: 048
     Dates: start: 20071101, end: 20071107

REACTIONS (1)
  - SEROTONIN SYNDROME [None]
